FAERS Safety Report 13537295 (Version 5)
Quarter: 2019Q3

REPORT INFORMATION
  Report Type: Spontaneous
  Country: JP (occurrence: JP)
  Receive Date: 20170511
  Receipt Date: 20190729
  Transmission Date: 20191004
  Serious: Yes (Death, Hospitalization)
  Sender: FDA-Public Use
  Company Number: JP-EISAI MEDICAL RESEARCH-EC-2017-027402

PATIENT
  Age: 59 Year
  Sex: Male

DRUGS (2)
  1. RINDERON [Concomitant]
     Indication: SEIZURE PROPHYLAXIS
     Route: 065
     Dates: start: 20170410, end: 20170504
  2. LENVIMA [Suspect]
     Active Substance: LENVATINIB
     Indication: ANAPLASTIC THYROID CANCER
     Route: 048
     Dates: start: 20170425, end: 20170504

REACTIONS (5)
  - Abdominal pain [Recovering/Resolving]
  - Malignant neoplasm progression [Fatal]
  - Lower gastrointestinal perforation [Recovering/Resolving]
  - Anaemia [Not Recovered/Not Resolved]
  - Haematochezia [Not Recovered/Not Resolved]

NARRATIVE: CASE EVENT DATE: 20170504
